FAERS Safety Report 9175001 (Version 1)
Quarter: 2013Q1

REPORT INFORMATION
  Report Type: Spontaneous
  Country: US (occurrence: US)
  Receive Date: 20130320
  Receipt Date: 20130320
  Transmission Date: 20140127
  Serious: Yes (Death, Hospitalization)
  Sender: FDA-Public Use
  Company Number: US-ASTRAZENECA-2013SE17668

PATIENT
  Age: 142 Day
  Sex: Female
  Weight: 3.1 kg

DRUGS (6)
  1. SYNAGIS [Suspect]
     Indication: ANTIVIRAL PROPHYLAXIS
     Dosage: 15 MG/KG, EVERY 28-30 DAYS
     Route: 030
     Dates: start: 20121117, end: 20121117
  2. SYNAGIS [Suspect]
     Indication: ANTIVIRAL PROPHYLAXIS
     Dosage: 15 MG/KG, EVERY 28-30 DAYS
     Route: 030
     Dates: start: 20121215, end: 20121215
  3. SYNAGIS [Suspect]
     Indication: ANTIVIRAL PROPHYLAXIS
     Dosage: 15 MG/KG, EVERY 28-30 DAYS
     Route: 030
  4. LASIX [Concomitant]
  5. POTASSIUM [Concomitant]
  6. MULTIVITAMIN [Concomitant]

REACTIONS (4)
  - Heart disease congenital [Fatal]
  - Bronchopulmonary dysplasia [Fatal]
  - Pneumonia [Unknown]
  - Respiratory syncytial virus infection [Unknown]
